FAERS Safety Report 8260859-7 (Version None)
Quarter: 2012Q2

REPORT INFORMATION
  Report Type: 
  Country: None (occurrence: None)
  Receive Date: 20120402
  Receipt Date: 20120319
  Transmission Date: 20120825
  Serious: Yes (Hospitalization, Other)
  Sender: FDA-Public Use
  Company Number: 2009AL002830

PATIENT
  Age: 28 Year
  Sex: Male
  Weight: 157.9198 kg

DRUGS (26)
  1. ASPIRIN [Concomitant]
  2. ZITHROMAX [Concomitant]
  3. COUMADIN [Concomitant]
  4. DIGOXIN [Suspect]
     Indication: CARDIAC DISORDER
     Dosage: 250 MCG, BID
     Dates: start: 19820521, end: 20090616
  5. VASOTEC [Concomitant]
  6. DIPHYLLINE [Concomitant]
  7. ALBUTEROL [Concomitant]
  8. PENICILLIN VK [Concomitant]
  9. VARENICLINE [Concomitant]
  10. ERYTHROCIN [Concomitant]
  11. PLAVIX [Concomitant]
  12. LISINOPRIL [Concomitant]
  13. TRAZODONE HCL [Concomitant]
  14. LASIX [Concomitant]
  15. DOXYCYCLINE [Concomitant]
  16. NADOLOL [Concomitant]
  17. FUROSEMIDE [Concomitant]
  18. LORATADINE [Concomitant]
  19. SULFAMETHOXAZOLE [Concomitant]
  20. LISINOIPRIL [Concomitant]
  21. PLAVIX [Concomitant]
  22. IBUPROFEN [Concomitant]
  23. KETOPROFEN [Concomitant]
  24. INDOMETHACIN [Concomitant]
  25. ASPIRIN [Concomitant]
  26. LORTAB [Concomitant]

REACTIONS (36)
  - HEART VALVE INCOMPETENCE [None]
  - PAIN IN EXTREMITY [None]
  - SUPRAVENTRICULAR EXTRASYSTOLES [None]
  - PLATELET COUNT DECREASED [None]
  - ECONOMIC PROBLEM [None]
  - TOOTH ABSCESS [None]
  - ELECTROCARDIOGRAM P WAVE ABNORMAL [None]
  - HEART RATE ABNORMAL [None]
  - CONDUCTION DISORDER [None]
  - TOBACCO USER [None]
  - TOOTH FRACTURE [None]
  - BUNDLE BRANCH BLOCK RIGHT [None]
  - FATIGUE [None]
  - RADIAL PULSE ABNORMAL [None]
  - SURGERY [None]
  - PRODUCTIVE COUGH [None]
  - PYREXIA [None]
  - ABNORMAL SLEEP-RELATED EVENT [None]
  - RIGHT VENTRICULAR DYSFUNCTION [None]
  - ATELECTASIS [None]
  - MULTIPLE INJURIES [None]
  - EXERCISE TOLERANCE DECREASED [None]
  - TREATMENT NONCOMPLIANCE [None]
  - HEADACHE [None]
  - CARDIAC MURMUR [None]
  - VENTRICULAR EXTRASYSTOLES [None]
  - HEART RATE INCREASED [None]
  - PULMONARY ARTERIAL PRESSURE INCREASED [None]
  - UNEVALUABLE EVENT [None]
  - BRADYCARDIA [None]
  - OBESITY [None]
  - BRONCHITIS [None]
  - QRS AXIS ABNORMAL [None]
  - RIGHT VENTRICULAR HYPERTROPHY [None]
  - JAW DISORDER [None]
  - AGGRESSION [None]
